FAERS Safety Report 9251150 (Version 1)
Quarter: 2013Q1

REPORT INFORMATION
  Report Type: Spontaneous
  Country: US (occurrence: None)
  Receive Date: 20130303
  Receipt Date: 20130303
  Transmission Date: 20140127
  Serious: Yes (Other)
  Sender: FDA-Public Use
  Company Number: 163-21880-12071331

PATIENT
  Age: 84 Year
  Sex: Female
  Weight: 56.25 kg

DRUGS (6)
  1. REVLIMID [Suspect]
     Indication: PLASMA CELL MYELOMA
     Dosage: 25 MG, 21 IN 28 D, PO
     Route: 048
     Dates: start: 20120616
  2. EVISTA (RALOXIFENE HYDROCHLORIDE) [Concomitant]
  3. DEXAMETHASONE (DEXAMETHASONE) [Concomitant]
  4. ATENOLOL(ATENOLOL) [Concomitant]
  5. OMEPRAZOLE(OMEPRAZOLE) [Concomitant]
  6. LEVOTHYROXINE (LEVOTHYROXINE) [Concomitant]

REACTIONS (2)
  - Anaemia [None]
  - Tremor [None]
